FAERS Safety Report 6385181-5 (Version None)
Quarter: 2009Q4

REPORT INFORMATION
  Report Type: 
  Country: None (occurrence: None)
  Receive Date: 20091002
  Receipt Date: 20090327
  Transmission Date: 20100525
  Serious: No
  Sender: FDA-Public Use
  Company Number: US-ASTRAZENECA-2006UW09687

PATIENT
  Age: 74 Year
  Sex: Female
  Weight: 75.7 kg

DRUGS (9)
  1. ARIMIDEX [Suspect]
     Route: 048
     Dates: start: 20060101
  2. EXEMESTANE [Suspect]
  3. METFORMIN [Concomitant]
     Indication: DIABETES MELLITUS
  4. GLYBURIDE [Concomitant]
  5. JANUVIA [Concomitant]
  6. CALCIUM [Concomitant]
  7. FISH OIL [Concomitant]
  8. CENTRUM SILVER [Concomitant]
  9. ASCORBIC ACID [Concomitant]

REACTIONS (3)
  - HOT FLUSH [None]
  - LOW DENSITY LIPOPROTEIN DECREASED [None]
  - MALAISE [None]
